FAERS Safety Report 14108616 (Version 1)
Quarter: 2017Q4

REPORT INFORMATION
  Report Type: Spontaneous
  Country: IT (occurrence: IT)
  Receive Date: 20171019
  Receipt Date: 20171019
  Transmission Date: 20180321
  Serious: Yes (Hospitalization, Other)
  Sender: FDA-Public Use
  Company Number: IT-GILEAD-2017-0299540

PATIENT
  Age: 62 Year
  Sex: Male
  Weight: 76 kg

DRUGS (2)
  1. GENVOYA [Suspect]
     Active Substance: COBICISTAT\ELVITEGRAVIR\EMTRICITABINE\TENOFOVIR ALAFENAMIDE FUMARATE
     Indication: HIV INFECTION
     Dosage: 1 DF, QD
     Route: 048
     Dates: start: 20170802, end: 20170830
  2. PREZISTA [Concomitant]
     Active Substance: DARUNAVIR ETHANOLATE
     Dosage: 800 MG, UNK
     Route: 048
     Dates: start: 20170802, end: 20170927

REACTIONS (2)
  - Renal failure [Recovering/Resolving]
  - Proteinuria [Recovering/Resolving]

NARRATIVE: CASE EVENT DATE: 20170920
